FAERS Safety Report 18230061 (Version 1)
Quarter: 2020Q3

REPORT INFORMATION
  Report Type: Report from Study
  Country: None (occurrence: CA)
  Receive Date: 20200904
  Receipt Date: 20200904
  Transmission Date: 20201103
  Serious: Yes (Other)
  Sender: FDA-Public Use
  Company Number: CA-ABBVIE-20K-028-3547395-00

PATIENT
  Sex: Female

DRUGS (1)
  1. HUMIRA [Suspect]
     Active Substance: ADALIMUMAB
     Indication: PSORIATIC ARTHROPATHY
     Route: 058
     Dates: start: 20200708

REACTIONS (4)
  - Urinary tract infection [Unknown]
  - Vaginal haemorrhage [Unknown]
  - Fungal infection [Unknown]
  - Cervical friability [Unknown]

NARRATIVE: CASE EVENT DATE: 2020
